FAERS Safety Report 7287386-8 (Version None)
Quarter: 2011Q1

REPORT INFORMATION
  Report Type: 
  Country: None (occurrence: None)
  Receive Date: 20110211
  Receipt Date: 20110127
  Transmission Date: 20110831
  Serious: Yes (Hospitalization, Disabling)
  Sender: FDA-Public Use
  Company Number: ES-BAYER-201021571GPV

PATIENT
  Sex: Male

DRUGS (36)
  1. LEUCOVORIN [Suspect]
     Dosage: 700 TOTAL DOSE
     Route: 042
     Dates: start: 20100310, end: 20100310
  2. 5-FU [Suspect]
     Dosage: 700 TOTAL DOSE
     Route: 040
     Dates: start: 20100224, end: 20100224
  3. INSULIN [INSULIN] [Concomitant]
     Dosage: 36 IU, QD
     Route: 058
     Dates: start: 20100201
  4. 5-FU [Suspect]
     Dosage: 4300.00 TOTAL DOSE
     Route: 042
     Dates: start: 20100310, end: 20100312
  5. INSULIN [INSULIN] [Concomitant]
     Indication: DIABETES MELLITUS
     Dosage: 32 IU, QD
     Dates: start: 20060101
  6. CANDESARTAN CILEXETIL [Concomitant]
     Indication: HYPERTENSION
     Dosage: 850 MG, QD
  7. DEXAMETHASONE [Concomitant]
     Dosage: 20 MG, QD
     Dates: start: 20100209, end: 20100209
  8. BRIMONIDINE [Concomitant]
     Indication: RETINOPATHY
     Dosage: UNK
     Dates: start: 20100324, end: 20100404
  9. SORAFENIB (RAF KINASE INHIBITOR) [Suspect]
     Indication: COLORECTAL CANCER
     Dosage: 400 MG, BID
     Route: 048
     Dates: start: 20100118, end: 20100208
  10. OXALIPLATIN [Suspect]
     Dosage: 150 TOTAL DOSE
     Route: 042
     Dates: start: 20100209, end: 20100209
  11. OXALIPLATIN [Suspect]
     Dosage: 120 TOTAL DOSE
     Route: 042
     Dates: start: 20100224, end: 20100224
  12. 5-FU [Suspect]
     Indication: COLORECTAL CANCER
     Dosage: 700 TOTAL DOSE
     Route: 040
     Dates: start: 20100118, end: 20100118
  13. 5-FU [Suspect]
     Dosage: 4300.00 TOAL DOSE EVERY TWO WEEKS FOR THREE DAYS
     Route: 041
     Dates: start: 20100118, end: 20100120
  14. 5-FU [Suspect]
     Dosage: 700TOTAL DOSR
     Route: 040
     Dates: start: 20100209, end: 20100209
  15. 5-FU [Suspect]
     Dosage: 700 TOTAL DOSE
     Route: 040
     Dates: start: 20100310, end: 20100310
  16. 5-FU [Suspect]
     Dosage: 4300.00 TOTAL DOSE
     Route: 042
     Dates: start: 20100209, end: 20100211
  17. PARAPRES [Concomitant]
     Indication: HYPERTENSION
     Dosage: 16 MG, QD
  18. SORAFENIB (RAF KINASE INHIBITOR) [Suspect]
     Dosage: 400 MG, QD
     Route: 048
     Dates: start: 20100209, end: 20100209
  19. OXALIPLATIN [Suspect]
     Dosage: 120 TOTAL DOSE
     Route: 042
     Dates: start: 20100310, end: 20100310
  20. LEUCOVORIN [Suspect]
     Indication: COLORECTAL CANCER
     Dosage: 700 TOTAL DOSE
     Route: 042
     Dates: start: 20100118, end: 20100118
  21. 5-FU [Suspect]
     Dosage: 4300.00 TOTAL DOSE
     Route: 042
     Dates: start: 20100224, end: 20100226
  22. ADIRO [Concomitant]
     Indication: HYPERTENSION
     Dosage: 100 MG, QD
     Dates: start: 20060101
  23. ONDANSERTRON HCL [Concomitant]
     Dosage: 80 MG, QD
     Dates: start: 20100224, end: 20100224
  24. DEXAMETHASONE [Concomitant]
     Dosage: 20 MG, QD
     Dates: start: 20100224, end: 20100224
  25. ONDANSERTRON HCL [Concomitant]
     Indication: PREMEDICATION
     Dosage: 80 MG, QD
     Dates: start: 20100118, end: 20100118
  26. OXALIPLATIN [Suspect]
     Indication: COLORECTAL CANCER
     Dosage: 150
     Route: 042
     Dates: start: 20100118, end: 20100118
  27. TETRAHYDROZOLINE HYDROCHLORIDE [Concomitant]
     Indication: RETINOPATHY
     Dosage: 0.50 MG, QD
     Route: 047
     Dates: start: 20100324
  28. DEXAMETHASONE [Concomitant]
     Indication: PREMEDICATION
     Dosage: 20 MG, QD
     Dates: start: 20100118, end: 20100118
  29. ONDANSERTRON HCL [Concomitant]
     Dosage: 80 MG, QD
     Dates: start: 20100209, end: 20100209
  30. SORAFENIB (RAF KINASE INHIBITOR) [Suspect]
     Dosage: UNK UNK, BID
     Route: 048
     Dates: start: 20100210, end: 20100223
  31. SORAFENIB (RAF KINASE INHIBITOR) [Suspect]
     Dosage: 400 MG, QD
     Route: 048
     Dates: start: 20100224, end: 20100323
  32. LEUCOVORIN [Suspect]
     Dosage: 700 TOTAL DOSE
     Route: 042
     Dates: start: 20100209, end: 20100209
  33. LEUCOVORIN [Suspect]
     Dosage: 700 TOTAL DOSE
     Route: 042
     Dates: start: 20100224, end: 20100224
  34. METFORMIN HCL [Concomitant]
     Indication: DIABETES MELLITUS
     Dosage: 2550 MG, QD
     Route: 048
     Dates: start: 19950101
  35. OMEPRAZOLE [Concomitant]
     Indication: PROPHYLAXIS
     Dosage: 20 MG, QD
     Route: 048
     Dates: start: 20100101
  36. DEXAMETHASONE [Concomitant]
     Dosage: 20 MG, QD
     Dates: start: 20100310, end: 20100310

REACTIONS (7)
  - DYSAESTHESIA [None]
  - MYOCARDIAL ISCHAEMIA [None]
  - DIARRHOEA [None]
  - HYPERTENSION [None]
  - CEREBRAL ISCHAEMIA [None]
  - DECREASED APPETITE [None]
  - HYPERGLYCAEMIA [None]
